FAERS Safety Report 5499515-7 (Version None)
Quarter: 2007Q4

REPORT INFORMATION
  Report Type: 
  Country: None (occurrence: None)
  Receive Date: 20071026
  Receipt Date: 20071017
  Transmission Date: 20080405
  Serious: Yes (Death, Other)
  Sender: FDA-Public Use
  Company Number: US-ROCHE-526514

PATIENT
  Age: 33 Year

DRUGS (4)
  1. DIAZEPAM [Suspect]
     Indication: DRUG USE FOR UNKNOWN INDICATION
     Dosage: ROUTE REPORTED AS INGESTION. CHRONICITY: ACUTE ON CHRONIC EXPOSURE.
     Route: 048
  2. METHADONE HCL [Suspect]
     Indication: DRUG USE FOR UNKNOWN INDICATION
     Dosage: ROUTE REPORTED AS INGESTION. CHRONICITY: ACUTE ON CHRONIC EXPOSURE.
     Route: 048
  3. MARIJUANA [Suspect]
     Indication: DRUG USE FOR UNKNOWN INDICATION
     Dosage: ROUTE REPORTED AS INGESTION. CHRONICITY: ACUTE ON CHRONIC EXPOSURE.
     Route: 055
  4. UNSPECIFIED DRUGS [Suspect]
     Indication: DRUG USE FOR UNKNOWN INDICATION
     Route: 065

REACTIONS (3)
  - CARDIAC ARREST [None]
  - COMPLETED SUICIDE [None]
  - RESPIRATORY ARREST [None]
